FAERS Safety Report 6252494-7 (Version None)
Quarter: 2009Q2

REPORT INFORMATION
  Report Type: 
  Country: None (occurrence: None)
  Receive Date: 20090629
  Receipt Date: 20090629
  Transmission Date: 20091009
  Serious: No
  Sender: FDA-Public Use
  Company Number: None

PATIENT
  Sex: Female
  Weight: 93.8946 kg

DRUGS (4)
  1. LAMOTRIGINE [Suspect]
     Indication: BIPOLAR II DISORDER
     Dosage: 100MG TWICE PO QDAY
     Route: 048
     Dates: start: 20090601
  2. LITHIUM [Concomitant]
  3. KLONOPIN [Concomitant]
  4. TOPAMAX [Concomitant]

REACTIONS (3)
  - AFFECTIVE DISORDER [None]
  - IRRITABILITY [None]
  - SUICIDAL IDEATION [None]
